FAERS Safety Report 7342568-1 (Version None)
Quarter: 2011Q1

REPORT INFORMATION
  Report Type: 
  Country: None (occurrence: None)
  Receive Date: 20110310
  Receipt Date: 20110210
  Transmission Date: 20110831
  Serious: Yes (Other)
  Sender: FDA-Public Use
  Company Number: US-BAYER-201038236NA

PATIENT
  Sex: Female
  Weight: 68.027 kg

DRUGS (8)
  1. PROTONIX [Concomitant]
  2. ADVIL [Concomitant]
  3. CEPHALEXIN [Concomitant]
     Dosage: 500 MG, UNK
     Route: 048
     Dates: start: 20071026
  4. YAZ [Suspect]
     Route: 048
     Dates: start: 20070401, end: 20080515
  5. MEPERIDINE HCL [Concomitant]
     Dosage: 50 MG, UNK
     Route: 048
     Dates: start: 20071026
  6. CEFUROXIME [Concomitant]
     Dosage: 250 MG, UNK
     Route: 048
     Dates: start: 20080303
  7. ESTRADIOL [Concomitant]
  8. FLUCONAZOLE [Concomitant]
     Dosage: 150 MG, UNK
     Route: 048
     Dates: start: 20080303

REACTIONS (3)
  - ABDOMINAL PAIN UPPER [None]
  - BILIARY DYSKINESIA [None]
  - ABDOMINAL PAIN [None]
